FAERS Safety Report 25402078 (Version 1)
Quarter: 2025Q2

REPORT INFORMATION
  Report Type: Spontaneous
  Country: FR (occurrence: FR)
  Receive Date: 20250605
  Receipt Date: 20250605
  Transmission Date: 20250716
  Serious: Yes (Hospitalization)
  Sender: MYLAN
  Company Number: None

PATIENT
  Age: 69 Year
  Sex: Male

DRUGS (16)
  1. EPLERENONE [Suspect]
     Active Substance: EPLERENONE
     Indication: Myocardial ischaemia
     Dosage: 1 DOSAGE FORM, QD (1 AT NOON)
     Dates: end: 20250329
  2. ALFUZOSIN [Suspect]
     Active Substance: ALFUZOSIN
     Indication: Benign prostatic hyperplasia
     Dosage: 1 DOSAGE FORM, QD (1 IN THE EVENING)
     Dates: end: 20250329
  3. CARVEDILOL [Suspect]
     Active Substance: CARVEDILOL
     Indication: Hypertension
     Dosage: 2 DOSAGE FORM, QD (1 TABLET MORNING AND EVENING)
     Dates: end: 20250329
  4. ROSUVASTATIN [Suspect]
     Active Substance: ROSUVASTATIN
     Indication: Hypercholesterolaemia
     Dosage: 1 DOSAGE FORM, QD (1 IN THE EVENING)
     Dates: end: 20250329
  5. RIVAROXABAN [Suspect]
     Active Substance: RIVAROXABAN
     Indication: Atrial fibrillation
     Dosage: 1 DOSAGE FORM, QD (1 TABLET IN THE MORNING)
     Dates: end: 20250329
  6. LISINOPRIL [Suspect]
     Active Substance: LISINOPRIL
     Indication: Atrial fibrillation
     Dosage: 20 MILLIGRAM, QD (IN THE MORNING)
     Dates: end: 20250329
  7. ALPRAZOLAM [Suspect]
     Active Substance: ALPRAZOLAM
     Indication: Behaviour disorder
     Dosage: 1 DOSAGE FORM, QD (1 IN THE EVENING)
     Dates: end: 20250329
  8. AMIODARONE [Suspect]
     Active Substance: AMIODARONE
     Indication: Atrial fibrillation
     Dosage: 1 DOSAGE FORM, QD (1 TAB IN THE MORNING)
     Dates: end: 20250329
  9. TOUJEO [Suspect]
     Active Substance: INSULIN GLARGINE
     Indication: Type 2 diabetes mellitus
     Dosage: 44 INTERNATIONAL UNIT, QD (IN THE MORNING)
     Dates: end: 20250329
  10. JARDIANCE [Suspect]
     Active Substance: EMPAGLIFLOZIN
     Indication: Type 2 diabetes mellitus
     Dosage: 10 MILLIGRAM, QD (IN THE MORNING)
     Dates: end: 20250329
  11. VALPROMIDE [Suspect]
     Active Substance: VALPROMIDE
     Indication: Behaviour disorder
     Dosage: 600 MILLIGRAM, QD (300 MG MORNING AND EVENING)
  12. TIAPRIDE HYDROCHLORIDE [Suspect]
     Active Substance: TIAPRIDE HYDROCHLORIDE
     Indication: Behaviour disorder
     Dosage: 25 MILLIGRAM, QD
     Dates: start: 202503, end: 20250329
  13. FLUTICASONE FUROATE\VILANTEROL TRIFENATATE [Concomitant]
     Active Substance: FLUTICASONE FUROATE\VILANTEROL TRIFENATATE
  14. ALBUTEROL [Concomitant]
     Active Substance: ALBUTEROL
  15. VITAMIN B12 [Concomitant]
     Active Substance: CYANOCOBALAMIN
  16. FOLIC ACID [Concomitant]
     Active Substance: FOLIC ACID

REACTIONS (2)
  - Hypotension [Not Recovered/Not Resolved]
  - Vertigo [Not Recovered/Not Resolved]

NARRATIVE: CASE EVENT DATE: 20250301
